FAERS Safety Report 10100488 (Version 2)
Quarter: 2014Q2

REPORT INFORMATION
  Report Type: Report from Study
  Country: US (occurrence: US)
  Receive Date: 20140423
  Receipt Date: 20140423
  Transmission Date: 20141212
  Serious: Yes (Hospitalization)
  Sender: FDA-Public Use
  Company Number: US-GLAXOSMITHKLINE-A0918699A

PATIENT
  Sex: Female

DRUGS (3)
  1. LAPATINIB [Suspect]
     Indication: BREAST CANCER
     Route: 048
     Dates: start: 20101028
  2. DOCETAXEL [Suspect]
     Indication: BREAST CANCER
     Dosage: 75MGM2 CYCLIC
     Route: 042
     Dates: start: 20101028
  3. CARBOPLATIN [Suspect]
     Indication: BREAST CANCER
     Route: 042
     Dates: start: 20101028

REACTIONS (1)
  - Anaemia [Recovered/Resolved]
